FAERS Safety Report 6820414-X (Version None)
Quarter: 2010Q3

REPORT INFORMATION
  Report Type: 
  Country: None (occurrence: None)
  Receive Date: 20100707
  Receipt Date: 20100623
  Transmission Date: 20110219
  Serious: Yes (Other)
  Sender: FDA-Public Use
  Company Number: DE-MYLANLABS-2010S1011162

PATIENT
  Age: 30 Year
  Sex: Male

DRUGS (2)
  1. VENLAFAXINE [Suspect]
     Indication: SCHIZOPHRENIA
     Dosage: PRESCRIBED DOSAGE; DOSAGE LIKELY HIGHER DURING ABUSE
     Route: 065
  2. QUETIAPINE [Concomitant]
     Indication: SCHIZOPHRENIA
     Route: 065

REACTIONS (4)
  - DRUG ABUSE [None]
  - DRUG DEPENDENCE [None]
  - MANIA [None]
  - PSYCHOMOTOR HYPERACTIVITY [None]
